FAERS Safety Report 6336281-7 (Version None)
Quarter: 2009Q3

REPORT INFORMATION
  Report Type: 
  Country: None (occurrence: None)
  Receive Date: 20090901
  Receipt Date: 20090825
  Transmission Date: 20100115
  Serious: No
  Sender: FDA-Public Use
  Company Number: US-B.I. PHARMACEUTICALS,INC./RIDGEFIELD-2009-BP-09805BP

PATIENT
  Sex: Male

DRUGS (8)
  1. ZANTAC [Suspect]
     Indication: DYSPEPSIA
     Route: 048
     Dates: start: 20090719, end: 20090820
  2. METOPROLOL [Concomitant]
     Indication: HYPERTENSION
  3. LISINOPRIL [Concomitant]
     Indication: HYPERTENSION
  4. HYDROCHLOROTHIAZIDE [Concomitant]
     Indication: HYPERTENSION
  5. AMLODIPINE [Concomitant]
     Indication: HYPERTENSION
  6. GEMFIBROZIL [Concomitant]
     Indication: BLOOD CHOLESTEROL INCREASED
  7. PRAVASTATIN [Concomitant]
     Indication: BLOOD CHOLESTEROL INCREASED
  8. ZANTAC [Concomitant]
     Indication: DYSPEPSIA
     Dates: start: 20060101, end: 20090701

REACTIONS (2)
  - DYSPEPSIA [None]
  - OROPHARYNGEAL DISCOMFORT [None]
